FAERS Safety Report 6634655-8 (Version None)
Quarter: 2010Q1

REPORT INFORMATION
  Report Type: 
  Country: None (occurrence: None)
  Receive Date: 20100315
  Receipt Date: 20100309
  Transmission Date: 20100710
  Serious: Yes (Hospitalization)
  Sender: FDA-Public Use
  Company Number: B0639075A

PATIENT
  Sex: Male

DRUGS (3)
  1. AMOXICILLIN TRIHYDRATE [Suspect]
     Indication: BRONCHITIS
     Dosage: 1G TWICE PER DAY
     Route: 048
     Dates: start: 20091212, end: 20091212
  2. PARACETAMOL [Suspect]
     Indication: BRONCHITIS
     Dosage: 1G AS REQUIRED
     Route: 048
     Dates: start: 20091212, end: 20091212
  3. PREDNISONE TAB [Suspect]
     Indication: BRONCHITIS
     Dosage: 20MG TWICE PER DAY
     Route: 048
     Dates: start: 20091212, end: 20091212

REACTIONS (5)
  - DYSPNOEA [None]
  - FEELING ABNORMAL [None]
  - GENERALISED ERYTHEMA [None]
  - HOT FLUSH [None]
  - PALPITATIONS [None]
